FAERS Safety Report 7322738-9 (Version None)
Quarter: 2011Q1

REPORT INFORMATION
  Report Type: 
  Country: None (occurrence: None)
  Receive Date: 20110301
  Receipt Date: 20110214
  Transmission Date: 20110831
  Serious: Yes (Life-Threatening, Hospitalization)
  Sender: FDA-Public Use
  Company Number: JP-CELGENEUS-087-21880-11021715

PATIENT
  Sex: Male

DRUGS (13)
  1. REVLIMID [Suspect]
     Indication: REFRACTORY CANCER
  2. DIFLUCAN [Concomitant]
     Indication: PROPHYLAXIS
     Dosage: 100 MILLIGRAM
     Route: 065
  3. DEXAMETHASONE [Concomitant]
     Indication: MULTIPLE MYELOMA
     Dosage: 33 MILLIGRAM
     Route: 041
     Dates: start: 20101208, end: 20101215
  4. BAKTAR [Concomitant]
     Indication: PROPHYLAXIS
     Dosage: 2 TABLET
     Route: 065
  5. ASPIRIN [Concomitant]
     Indication: PROPHYLAXIS
     Dosage: 100 MILLIGRAM
     Route: 065
     Dates: start: 20101208
  6. PARIET [Concomitant]
     Indication: PROPHYLAXIS
     Dosage: 10 MILLIGRAM
     Route: 065
  7. METHYLCOBAL [Concomitant]
     Dosage: 1500 PICOGRAM
     Route: 065
  8. BIOFERMIN [Concomitant]
     Indication: PROPHYLAXIS
     Dosage: 3 TABLET
     Route: 065
  9. ALLEGRA [Concomitant]
     Dosage: 120 MILLIGRAM
     Route: 065
  10. PREDONINE [Concomitant]
     Dosage: 5 MILLIGRAM
     Route: 065
  11. REVLIMID [Suspect]
     Indication: MULTIPLE MYELOMA
     Dosage: 10 MILLIGRAM
     Route: 048
     Dates: start: 20101208, end: 20101221
  12. DEXAMETHASONE [Concomitant]
     Indication: REFRACTORY CANCER
  13. ALOSITOL [Concomitant]
     Dosage: 200 MILLIGRAM
     Route: 065

REACTIONS (5)
  - JAUNDICE [None]
  - NEUTROPHIL COUNT DECREASED [None]
  - WHITE BLOOD CELL COUNT DECREASED [None]
  - PLATELET COUNT DECREASED [None]
  - SEPSIS [None]
